FAERS Safety Report 14643998 (Version 1)
Quarter: 2018Q1

REPORT INFORMATION
  Report Type: Spontaneous
  Country: US (occurrence: US)
  Receive Date: 20180315
  Receipt Date: 20180315
  Transmission Date: 20180509
  Serious: No
  Sender: FDA-Public Use
  Company Number: US-ALLERGAN-1810311US

PATIENT
  Age: 19 Year
  Sex: Female

DRUGS (2)
  1. ACZONE [Suspect]
     Active Substance: DAPSONE
     Indication: ACNE
     Dosage: UNK, QAM
     Route: 061
     Dates: end: 20180220
  2. ADAPALENE. [Concomitant]
     Active Substance: ADAPALENE
     Indication: ACNE
     Dosage: UNK UNK, QPM
     Route: 061

REACTIONS (2)
  - Rash erythematous [Not Recovered/Not Resolved]
  - Erythema [Not Recovered/Not Resolved]

NARRATIVE: CASE EVENT DATE: 20180220
